FAERS Safety Report 21110862 (Version 1)
Quarter: 2022Q3

REPORT INFORMATION
  Report Type: Spontaneous
  Country: CA (occurrence: CA)
  Receive Date: 20220721
  Receipt Date: 20220721
  Transmission Date: 20221027
  Serious: Yes (Hospitalization, Other)
  Sender: FDA-Public Use
  Company Number: None

PATIENT
  Age: 37 Year
  Sex: Male

DRUGS (8)
  1. ESCITALOPRAM [Suspect]
     Active Substance: ESCITALOPRAM OXALATE
     Indication: Anxiety
     Dosage: 1 EVERY 1 DAYS
     Route: 048
  2. RIZATRIPTAN [Suspect]
     Active Substance: RIZATRIPTAN
     Indication: Migraine
     Dosage: AS REQUIRED, TABLET (ORALLY DISINTEGRATING)
     Route: 048
  3. AMITRIPTYLINE [Concomitant]
     Active Substance: AMITRIPTYLINE
  4. CANNABIS SATIVA SUBSP. INDICA TOP [Concomitant]
     Active Substance: CANNABIS SATIVA SUBSP. INDICA TOP
  5. LORAZEPAM [Concomitant]
     Active Substance: LORAZEPAM
  6. METOCLOPRAMIDE [Concomitant]
     Active Substance: METOCLOPRAMIDE
  7. NAPROXEN [Concomitant]
     Active Substance: NAPROXEN
  8. PREDNISONE [Concomitant]
     Active Substance: PREDNISONE

REACTIONS (5)
  - Cerebellar haemorrhage [Unknown]
  - Clumsiness [Unknown]
  - Headache [Unknown]
  - Reversible cerebral vasoconstriction syndrome [Unknown]
  - Venous angioma of brain [Unknown]
